FAERS Safety Report 9331136 (Version 2)
Quarter: 2013Q2

REPORT INFORMATION
  Report Type: Spontaneous
  Country: DE (occurrence: None)
  Receive Date: 20130531
  Receipt Date: 20130604
  Transmission Date: 20140414
  Serious: Yes (Hospitalization, Other)
  Sender: FDA-Public Use
  Company Number: AUR-APL-2013-04362

PATIENT
  Age: 0 Day
  Sex: Female
  Weight: 3.42 kg

DRUGS (1)
  1. LEVETIRACETAM [Suspect]
     Indication: EPILEPSY
     Dosage: 750 MG, 2 IN 1 D?
     Dates: start: 20120504, end: 20130206

REACTIONS (3)
  - Maternal drugs affecting foetus [None]
  - Ventouse extraction [None]
  - Oxygen saturation decreased [None]
